FAERS Safety Report 25185837 (Version 2)
Quarter: 2025Q2

REPORT INFORMATION
  Report Type: Other
  Country: US (occurrence: US)
  Receive Date: 20250410
  Receipt Date: 20250415
  Transmission Date: 20250717
  Serious: Yes (Death)
  Sender: ALVOGEN
  Company Number: US-ALVOGEN-2025096580

PATIENT
  Sex: Female

DRUGS (2)
  1. FENTANYL [Suspect]
     Active Substance: FENTANYL
     Indication: Product used for unknown indication
     Route: 065
  2. METHAMPHETAMINE [Suspect]
     Active Substance: METHAMPHETAMINE
     Indication: Product used for unknown indication
     Route: 065

REACTIONS (4)
  - Product contamination [Fatal]
  - Product tampering [Fatal]
  - Poor quality product administered [Fatal]
  - Prescription drug used without a prescription [Unknown]
